FAERS Safety Report 4514921-2 (Version None)
Quarter: 2004Q4

REPORT INFORMATION
  Report Type: 
  Country: None (occurrence: None)
  Receive Date: 20041126
  Receipt Date: 20041115
  Transmission Date: 20050328
  Serious: Yes (Hospitalization)
  Sender: FDA-Public Use
  Company Number: RENA-11188

PATIENT
  Age: 71 Year
  Sex: Male
  Weight: 54.5 kg

DRUGS (12)
  1. RENAGEL [Suspect]
     Indication: HYPERPHOSPHATAEMIA
     Dosage: 1.5 G TID PO
     Route: 048
     Dates: start: 20040607, end: 20040920
  2. DIPYRIDAMOLE [Suspect]
     Indication: ANGINA PECTORIS
  3. FUROSEMIDE [Concomitant]
  4. NIFEDIPINE [Concomitant]
  5. DOXAZOSIN MESYLATE [Concomitant]
  6. LOSARTAN POTASSIUM [Concomitant]
  7. ALLOPURINOL [Concomitant]
  8. CALCIUM CARBONATE [Concomitant]
  9. EPOETIN ALFA [Concomitant]
  10. CHONDROITIN SULFATE SODIUM, FERRIC CHLORIDE [Concomitant]
  11. MAXACALCITOL [Concomitant]
  12. DIPYRIDAMOLE [Concomitant]

REACTIONS (2)
  - DUODENAL ULCER PERFORATION [None]
  - GASTRIC PERFORATION [None]
